FAERS Safety Report 20226158 (Version 1)
Quarter: 2021Q4

REPORT INFORMATION
  Report Type: Spontaneous
  Country: ES (occurrence: ES)
  Receive Date: 20211224
  Receipt Date: 20211224
  Transmission Date: 20220303
  Serious: Yes (Death, Hospitalization, Other)
  Sender: FDA-Public Use
  Company Number: ES-AMGEN-ESPSP2021202219

PATIENT
  Age: 58 Year
  Sex: Male

DRUGS (5)
  1. PANITUMUMAB [Suspect]
     Active Substance: PANITUMUMAB
     Indication: Adenocarcinoma of colon
     Dosage: UNK UNK, CYCLICAL
     Route: 065
     Dates: start: 20180126, end: 20180615
  2. PANITUMUMAB [Suspect]
     Active Substance: PANITUMUMAB
     Dosage: UNK UNK, CYCLICAL
     Route: 065
     Dates: start: 202007, end: 20201029
  3. FLUOROURACIL [Concomitant]
     Active Substance: FLUOROURACIL
     Indication: Adenocarcinoma of colon
     Dosage: UNK UNK, CYCLICAL
     Dates: start: 20180126
  4. OXALIPLATIN [Concomitant]
     Active Substance: OXALIPLATIN
     Indication: Adenocarcinoma of colon
     Dosage: UNK UNK, CYCLICAL
     Dates: start: 20180126, end: 20180615
  5. LEUCOVORIN [Concomitant]
     Active Substance: LEUCOVORIN
     Indication: Adenocarcinoma of colon
     Dosage: UNK UNK, CYCLICAL
     Dates: start: 20180126

REACTIONS (19)
  - Death [Fatal]
  - Neurotoxicity [Unknown]
  - Neuropathy peripheral [Unknown]
  - Intestinal obstruction [Unknown]
  - Cardio-respiratory arrest [Recovered/Resolved]
  - Rectal haemorrhage [Recovered/Resolved]
  - Paronychia [Unknown]
  - Neutropenia [Unknown]
  - Metastases to liver [Unknown]
  - Adenocarcinoma of colon [Unknown]
  - Anaemia [Unknown]
  - Hypomagnesaemia [Unknown]
  - Cognitive disorder [Unknown]
  - Therapy partial responder [Unknown]
  - Rash [Unknown]
  - Mucosal inflammation [Unknown]
  - Decreased appetite [Unknown]
  - Asthenia [Unknown]
  - Dysgeusia [Unknown]

NARRATIVE: CASE EVENT DATE: 20180101
